FAERS Safety Report 15258791 (Version 1)
Quarter: 2018Q4

REPORT INFORMATION
  Report Type: Spontaneous
  Country: US (occurrence: US)
  Receive Date: 20180809
  Receipt Date: 20180809
  Transmission Date: 20190204
  Serious: Yes (Other)
  Sender: FDA-Public Use
  Company Number: US-LUPIN PHARMACEUTICALS INC.-2018-05548

PATIENT
  Age: 70 Year
  Sex: Male

DRUGS (1)
  1. TESTOSTERONE. [Suspect]
     Active Substance: TESTOSTERONE
     Indication: BLOOD TESTOSTERONE FREE DECREASED
     Dosage: 400 MG, INJECTION ONCE PER MONTH
     Route: 030
     Dates: start: 200803

REACTIONS (2)
  - Osteonecrosis [Unknown]
  - Drug-disease interaction [Unknown]

NARRATIVE: CASE EVENT DATE: 200808
